FAERS Safety Report 9885814 (Version 2)
Quarter: 2014Q2

REPORT INFORMATION
  Report Type: Report from Study
  Country: US (occurrence: US)
  Receive Date: 20140210
  Receipt Date: 20140620
  Transmission Date: 20141212
  Serious: Yes (Hospitalization, Other)
  Sender: FDA-Public Use
  Company Number: US-BRISTOL-MYERS SQUIBB COMPANY-20107942

PATIENT
  Age: 84 Year
  Sex: Female

DRUGS (1)
  1. ABATACEPT SUBQ INJECTION 125MG/ML [Suspect]
     Indication: RHEUMATOID ARTHRITIS
     Dosage: LAST INJ: 01JAN14
     Route: 058

REACTIONS (5)
  - Cardiac failure [Unknown]
  - Renal failure [Unknown]
  - Cystitis [Unknown]
  - Oral disorder [Unknown]
  - Blood pressure increased [Unknown]
